FAERS Safety Report 4722652-9 (Version None)
Quarter: 2005Q3

REPORT INFORMATION
  Report Type: 
  Country: None (occurrence: None)
  Receive Date: 20050722
  Receipt Date: 20050713
  Transmission Date: 20060218
  Serious: Yes (Life-Threatening, Hospitalization)
  Sender: FDA-Public Use
  Company Number: US-MERCK-0507USA01880

PATIENT
  Age: 56 Year
  Sex: Male

DRUGS (7)
  1. VIOXX [Suspect]
     Route: 048
  2. GLUCOVANCE [Concomitant]
     Route: 065
  3. STARLIX [Concomitant]
     Route: 065
  4. COREG [Concomitant]
     Route: 065
  5. INSULIN [Concomitant]
     Route: 065
  6. LASIX [Concomitant]
     Route: 065
  7. LANOXIN [Concomitant]
     Route: 065

REACTIONS (1)
  - CARDIAC FAILURE CONGESTIVE [None]
